FAERS Safety Report 9190089 (Version 2)
Quarter: 2013Q2

REPORT INFORMATION
  Report Type: Spontaneous
  Country: US (occurrence: US)
  Receive Date: 20130326
  Receipt Date: 20130517
  Transmission Date: 20140414
  Serious: No
  Sender: FDA-Public Use
  Company Number: US-PFIZER INC-2013097191

PATIENT
  Age: 60 Year
  Sex: Male

DRUGS (5)
  1. LOPID [Suspect]
     Dosage: UNK
  2. ATENOLOL [Suspect]
     Dosage: UNK
  3. FLOVENT [Suspect]
     Dosage: UNK
  4. AZMACORT [Suspect]
     Dosage: UNK
  5. BECLOMETHASONE [Suspect]
     Dosage: UNK

REACTIONS (1)
  - Drug hypersensitivity [Unknown]
